FAERS Safety Report 14303082 (Version 3)
Quarter: 2018Q2

REPORT INFORMATION
  Report Type: Report from Study
  Country: IT (occurrence: IT)
  Receive Date: 20171219
  Receipt Date: 20180615
  Transmission Date: 20180711
  Serious: Yes (Life-Threatening, Hospitalization, Other)
  Sender: FDA-Public Use
  Company Number: IT-MYLANLABS-2017M1079827

PATIENT
  Age: 11 Year
  Sex: Female
  Weight: 38.3 kg

DRUGS (22)
  1. IMATINIB [Suspect]
     Active Substance: IMATINIB
     Dosage: 300 MG, QD
     Route: 048
     Dates: start: 20120508, end: 20120527
  2. IMATINIB [Suspect]
     Active Substance: IMATINIB
     Dosage: 100 MG, QD
     Route: 048
     Dates: start: 20120829, end: 20121027
  3. FENOBARBITAL [Concomitant]
     Active Substance: PHENOBARBITAL
     Indication: NERVOUS SYSTEM DISORDER
     Dosage: UNK UNK,
     Route: 065
  4. IMATINIB [Suspect]
     Active Substance: IMATINIB
     Indication: ACUTE LYMPHOCYTIC LEUKAEMIA
     Dosage: 300 MG, QD
     Route: 048
     Dates: start: 20120327, end: 20120402
  5. IMATINIB [Suspect]
     Active Substance: IMATINIB
     Dosage: 400 MG, QD
     Route: 048
     Dates: start: 20120604, end: 20120617
  6. IMATINIB [Suspect]
     Active Substance: IMATINIB
     Dosage: UNK
  7. PEGASPARGASE [Suspect]
     Active Substance: PEGASPARGASE
     Dosage: 3400UI/DOSE
  8. PREDNISONE. [Suspect]
     Active Substance: PREDNISONE
     Indication: PRODUCT USED FOR UNKNOWN INDICATION
     Dosage: 80 MG, QD
     Route: 048
  9. RANITIDINE. [Suspect]
     Active Substance: RANITIDINE
     Indication: PRODUCT USED FOR UNKNOWN INDICATION
     Dosage: 300 MG, QD
     Route: 048
     Dates: start: 20120327
  10. FENOFIBRATE MYLAN [Suspect]
     Active Substance: FENOFIBRATE
     Indication: PRODUCT USED FOR UNKNOWN INDICATION
     Dosage: 100 MG, QD
     Route: 048
     Dates: start: 20121219
  11. IMATINIB [Suspect]
     Active Substance: IMATINIB
     Dosage: 300 MG, QD
     Route: 048
     Dates: start: 20120801, end: 20120804
  12. THIOTEPA. [Concomitant]
     Active Substance: THIOTEPA
     Indication: PRODUCT USED FOR UNKNOWN INDICATION
  13. ATG [Concomitant]
     Active Substance: LAPINE T-LYMPHOCYTE IMMUNE GLOBULIN
     Indication: PROPHYLAXIS
     Dosage: 3.5 MG/KG, BID
     Route: 065
     Dates: start: 20120824, end: 20120826
  14. DESAMETASONE [Suspect]
     Active Substance: DEXAMETHASONE
     Indication: PRODUCT USED FOR UNKNOWN INDICATION
     Dosage: 2.5 MG, QD
     Route: 048
     Dates: start: 20121219
  15. FENOFIBRATE MYLAN [Suspect]
     Active Substance: FENOFIBRATE
     Indication: PRODUCT USED FOR UNKNOWN INDICATION
  16. PEG-L-ASPARAGINASE [Suspect]
     Active Substance: PEGASPARGASE
     Indication: PRODUCT USED FOR UNKNOWN INDICATION
     Dosage: 3400UI/DOSE
     Route: 048
  17. PEGASPARGASE [Suspect]
     Active Substance: PEGASPARGASE
     Indication: PRODUCT USED FOR UNKNOWN INDICATION
     Dosage: 100 MG, QD
     Route: 048
     Dates: start: 20171219
  18. FENOBARBITAL [Concomitant]
     Active Substance: PHENOBARBITAL
     Dosage: 100 MG, QD
     Route: 048
  19. CYCLOPHOSPHAMIDE. [Concomitant]
     Active Substance: CYCLOPHOSPHAMIDE
     Indication: PRODUCT USED FOR UNKNOWN INDICATION
  20. PREDNISONE. [Suspect]
     Active Substance: PREDNISONE
     Dosage: UNK
  21. IMATINIB [Suspect]
     Active Substance: IMATINIB
     Dosage: 400 MG, QD
     Route: 048
     Dates: start: 20120624, end: 20120706
  22. TB1 [Concomitant]
     Indication: PRODUCT USED FOR UNKNOWN INDICATION

REACTIONS (17)
  - Left ventricular dysfunction [Recovered/Resolved]
  - Mitral valve disease [Recovered/Resolved]
  - Febrile neutropenia [Recovered/Resolved]
  - Bone marrow failure [Recovered/Resolved]
  - Hepatotoxicity [Recovered/Resolved]
  - Escherichia urinary tract infection [Recovered/Resolved]
  - Respiratory failure [Recovered/Resolved]
  - Rash erythematous [Recovered/Resolved]
  - Pyrexia [Recovered/Resolved]
  - Visual impairment [Recovered/Resolved]
  - Herpes zoster [Recovered/Resolved]
  - Acute kidney injury [Recovered/Resolved]
  - Hypokinesia [Recovered/Resolved]
  - Dizziness [Recovered/Resolved]
  - Blister [Recovered/Resolved]
  - Mucosal inflammation [Recovered/Resolved]
  - Pain [Unknown]

NARRATIVE: CASE EVENT DATE: 20120401
